FAERS Safety Report 7821911-0 (Version None)
Quarter: 2011Q4

REPORT INFORMATION
  Report Type: 
  Country: None (occurrence: None)
  Receive Date: 20111018
  Receipt Date: 20110526
  Transmission Date: 20120403
  Serious: No
  Sender: FDA-Public Use
  Company Number: US-ASTRAZENECA-2010SE40951

PATIENT
  Age: 69 Year
  Sex: Female
  Weight: 43.1 kg

DRUGS (5)
  1. XANAX [Concomitant]
  2. OXYGEN [Concomitant]
  3. SYMBICORT [Suspect]
     Indication: CHRONIC OBSTRUCTIVE PULMONARY DISEASE
     Dosage: 160/4.5 MCG TWO TIMES A DAY
     Route: 055
     Dates: start: 20100101
  4. SPIRIVA [Concomitant]
  5. XOPENEX [Concomitant]

REACTIONS (4)
  - RHINORRHOEA [None]
  - DRUG INEFFECTIVE [None]
  - DRY MOUTH [None]
  - NASOPHARYNGITIS [None]
